FAERS Safety Report 9217894 (Version 1)
Quarter: 2013Q2

REPORT INFORMATION
  Report Type: Spontaneous
  Country: US (occurrence: US)
  Receive Date: 20130408
  Receipt Date: 20130408
  Transmission Date: 20140414
  Serious: Yes (Other)
  Sender: FDA-Public Use
  Company Number: US-PFIZER INC-2013108555

PATIENT
  Age: 45 Year
  Sex: Female

DRUGS (3)
  1. PRISTIQ [Suspect]
     Dosage: UNK
  2. REGLAN [Suspect]
     Dosage: UNK
  3. ABILIFY [Suspect]
     Dosage: UNK

REACTIONS (2)
  - Dystonia [Unknown]
  - Nausea [Recovered/Resolved]
